FAERS Safety Report 24368500 (Version 1)
Quarter: 2024Q3

REPORT INFORMATION
  Report Type: Report from Study
  Country: AR (occurrence: AR)
  Receive Date: 20240926
  Receipt Date: 20240926
  Transmission Date: 20241016
  Serious: Yes (Hospitalization)
  Sender: BIOGEN
  Company Number: AR-BIOGEN-2024BI01283587

PATIENT
  Age: 29 Year
  Sex: Male

DRUGS (1)
  1. TYSABRI [Suspect]
     Active Substance: NATALIZUMAB
     Indication: Multiple sclerosis
     Dosage: LAST APPLICATION ON 28 MAR 2024 DUE TO DELIVERY DELAYS FROM THE HEALTH INSURANCE
     Route: 050
     Dates: start: 20210729

REACTIONS (1)
  - Multiple sclerosis relapse [Not Recovered/Not Resolved]

NARRATIVE: CASE EVENT DATE: 20240917
